FAERS Safety Report 5146073-2 (Version None)
Quarter: 2006Q4

REPORT INFORMATION
  Report Type: 
  Country: None (occurrence: None)
  Receive Date: 20061108
  Receipt Date: 20061025
  Transmission Date: 20070319
  Serious: Yes (Other)
  Sender: FDA-Public Use
  Company Number: PHBS2006BR16898

PATIENT
  Age: 50 Year
  Sex: Female
  Weight: 88 kg

DRUGS (5)
  1. ESTRADOT [Suspect]
     Indication: MENOPAUSE
     Dosage: 100 UG, UNK
     Route: 062
  2. ESTRADOT [Suspect]
     Dosage: 25 UG, UNK
  3. FLOTAC [Concomitant]
     Indication: PAIN
  4. EUTHYROX [Concomitant]
     Indication: THYROID DISORDER
     Dosage: 50 MG/DAY
     Dates: start: 19980101
  5. FRONTAL [Concomitant]
     Indication: INSOMNIA
     Dosage: 1 MG/DAY

REACTIONS (11)
  - ANXIETY [None]
  - CONDITION AGGRAVATED [None]
  - DEPRESSION [None]
  - DIZZINESS [None]
  - FEELING HOT [None]
  - HYPERTENSION [None]
  - IRRITABILITY [None]
  - MALAISE [None]
  - MENOPAUSAL SYMPTOMS [None]
  - MIGRAINE [None]
  - PALPITATIONS [None]
